FAERS Safety Report 19831658 (Version 5)
Quarter: 2022Q1

REPORT INFORMATION
  Report Type: Report from Study
  Country: US (occurrence: US)
  Receive Date: 20210915
  Receipt Date: 20220125
  Transmission Date: 20220423
  Serious: Yes (Hospitalization)
  Sender: FDA-Public Use
  Company Number: US-APELLIS-00931

PATIENT
  Age: 43 Year
  Sex: Female

DRUGS (9)
  1. EMPAVELI [Suspect]
     Active Substance: PEGCETACOPLAN
     Indication: Paroxysmal nocturnal haemoglobinuria
     Dosage: TIME INTERVAL: 0.33333333 WEEKS
     Route: 058
  2. EMPAVELI [Suspect]
     Active Substance: PEGCETACOPLAN
     Indication: Paroxysmal nocturnal haemoglobinuria
     Route: 058
  3. EMPAVELI [Suspect]
     Active Substance: PEGCETACOPLAN
     Indication: Paroxysmal nocturnal haemoglobinuria
     Dosage: TIME INTERVAL: 0.33333333 WEEKS
     Route: 058
  4. 45560 (GLOBALC3Mar21): Effexor XR [Concomitant]
     Indication: Product used for unknown indication
  5. 1324650 (GLOBALC3Mar21): Spiranolactone [Concomitant]
     Indication: Product used for unknown indication
  6. 1229896 (GLOBALC3Mar21): Desferal [Concomitant]
     Indication: Product used for unknown indication
  7. 2787444 (GLOBALC3Mar21): Lidocaine [Concomitant]
     Indication: Product used for unknown indication
  8. 1325274 (GLOBALC3Mar21): Hydrocodone [Concomitant]
     Indication: Product used for unknown indication
  9. 4374102 (GLOBALC3Sep21): Ultomiris (ravulizumab) [Concomitant]
     Indication: Paroxysmal nocturnal haemoglobinuria

REACTIONS (5)
  - Clostridium difficile infection [Not Recovered/Not Resolved]
  - Off label use [Unknown]
  - Paroxysmal nocturnal haemoglobinuria [Not Recovered/Not Resolved]
  - Condition aggravated [Not Recovered/Not Resolved]
  - Prescribed overdose [Unknown]

NARRATIVE: CASE EVENT DATE: 20210830
